FAERS Safety Report 11082167 (Version 1)
Quarter: 2015Q2

REPORT INFORMATION
  Report Type: Spontaneous
  Country: US (occurrence: US)
  Receive Date: 20150501
  Receipt Date: 20150501
  Transmission Date: 20150821
  Serious: No
  Sender: FDA-Public Use
  Company Number: US-PFIZER INC-2015144248

PATIENT
  Sex: Male

DRUGS (1)
  1. VIAGRA [Suspect]
     Active Substance: SILDENAFIL CITRATE
     Indication: ERECTILE DYSFUNCTION
     Dosage: 1 CAPSULE UP TO FOUR TIMES A WEEK
     Route: 048
     Dates: start: 2015, end: 20150413

REACTIONS (1)
  - Penile swelling [Not Recovered/Not Resolved]

NARRATIVE: CASE EVENT DATE: 2015
